FAERS Safety Report 19466508 (Version 3)
Quarter: 2021Q3

REPORT INFORMATION
  Report Type: Report from Study
  Country: US (occurrence: US)
  Receive Date: 20210628
  Receipt Date: 20210917
  Transmission Date: 20211014
  Serious: Yes (Other)
  Sender: FDA-Public Use
  Company Number: US-UCBSA-2021030100

PATIENT
  Sex: Female
  Weight: 190 kg

DRUGS (1)
  1. CERTOLIZUMAB PEGOL [Suspect]
     Active Substance: CERTOLIZUMAB PEGOL
     Indication: PSORIASIS
     Dosage: 400 MILLIGRAM, EV 2 WEEKS(QOW)
     Dates: start: 20210612, end: 20210619

REACTIONS (4)
  - Psoriasis [Not Recovered/Not Resolved]
  - Product distribution issue [Unknown]
  - Drug ineffective [Unknown]
  - Therapy interrupted [Unknown]
